FAERS Safety Report 7398949-3 (Version None)
Quarter: 2011Q2

REPORT INFORMATION
  Report Type: 
  Country: None (occurrence: None)
  Receive Date: 20110407
  Receipt Date: 20110401
  Transmission Date: 20111010
  Serious: No
  Sender: FDA-Public Use
  Company Number: US-PFIZER INC-2011031503

PATIENT
  Age: 67 Year
  Sex: Female

DRUGS (4)
  1. LIPITOR [Suspect]
     Indication: BLOOD CHOLESTEROL INCREASED
     Dosage: 10 MG, 1X/DAY
     Route: 048
     Dates: start: 20010101
  2. CALCIUM CARBONATE/ERGOCALCIFEROL [Concomitant]
     Dosage: UNK
  3. ACTONEL [Concomitant]
     Dosage: 35 MG, WEEKLY
  4. MULTI-VITAMINS [Concomitant]
     Dosage: UNK

REACTIONS (1)
  - BLOOD CREATINE PHOSPHOKINASE INCREASED [None]
